FAERS Safety Report 17533422 (Version 1)
Quarter: 2020Q1

REPORT INFORMATION
  Report Type: Spontaneous
  Country: US (occurrence: US)
  Receive Date: 20200304
  Receipt Date: 20200304
  Transmission Date: 20200409
  Serious: Yes (Hospitalization)
  Sender: FDA-Public Use
  Company Number: None

PATIENT
  Age: 58 Year
  Sex: Female

DRUGS (9)
  1. AMLODIPINE [Concomitant]
     Active Substance: AMLODIPINE BESYLATE
  2. AMOXICILLIN. [Concomitant]
     Active Substance: AMOXICILLIN
  3. ORENCIA [Suspect]
     Active Substance: ABATACEPT
     Indication: OSTEOPOROSIS
     Route: 058
     Dates: start: 20180125
  4. FOLIC ACID. [Concomitant]
     Active Substance: FOLIC ACID
  5. MELOXICAM. [Concomitant]
     Active Substance: MELOXICAM
  6. METHOTREXATE. [Concomitant]
     Active Substance: METHOTREXATE
  7. PHENTERMINE. [Concomitant]
     Active Substance: PHENTERMINE
  8. HYDROXYCHLOR [Concomitant]
     Active Substance: HYDROXYCHLOROQUINE
  9. IBUPROFEN. [Concomitant]
     Active Substance: IBUPROFEN

REACTIONS (1)
  - Surgery [None]
